APPROVED DRUG PRODUCT: PRISMASOL BGK 4/3.5 IN PLASTIC CONTAINER
Active Ingredient: CALCIUM CHLORIDE; DEXTROSE; LACTIC ACID; MAGNESIUM CHLORIDE; POTASSIUM CHLORIDE; SODIUM BICARBONATE; SODIUM CHLORIDE
Strength: 5.15GM/1000ML;20GM/1000ML;5.4GM/1000ML;2.03GM/1000ML;0.314GM/1000ML;3.09GM/1000ML;6.46GM/1000ML (5000ML)
Dosage Form/Route: INJECTABLE;INJECTION
Application: N021703 | Product #008
Applicant: VANTIVE US HEALTHCARE LLC
Approved: Oct 25, 2006 | RLD: No | RS: No | Type: DISCN